FAERS Safety Report 9525638 (Version 1)
Quarter: 2013Q3

REPORT INFORMATION
  Report Type: Spontaneous
  Country: US (occurrence: US)
  Receive Date: 20130915
  Receipt Date: 20130915
  Transmission Date: 20140515
  Serious: Yes (Other)
  Sender: FDA-Public Use
  Company Number: US-RB-058311-13

PATIENT
  Age: 40 Year
  Sex: Female

DRUGS (9)
  1. SUBOXONE FILM [Suspect]
     Indication: PAIN
     Dosage: SUBOXONE FILM
     Route: 060
     Dates: start: 2012
  2. EFFEXOR [Concomitant]
     Indication: DEPRESSION
     Route: 048
     Dates: start: 1999
  3. WELLBUTRIN [Concomitant]
     Indication: DEPRESSION
     Route: 048
     Dates: start: 1999
  4. ACIPHEX [Concomitant]
     Indication: GASTROOESOPHAGEAL REFLUX DISEASE
     Dosage: DOSING DETAILS UNKNOWN
     Route: 048
  5. CELEBREX [Concomitant]
     Indication: PAIN
     Route: 048
  6. BACLOFEN [Concomitant]
     Indication: MUSCLE RELAXANT THERAPY
     Route: 048
  7. VITAMIN B12 [Concomitant]
     Indication: VITAMIN B12 DEFICIENCY
     Dosage: DOSING DETAILS UNKNOWN
     Route: 048
  8. VITAMIN D3 [Concomitant]
     Indication: VITAMIN D DEFICIENCY
     Dosage: DOSING DETAILS UNKNOWN
     Route: 048
  9. NICOTINE [Concomitant]
     Indication: NICOTINE DEPENDENCE
     Dosage: ONE PACK PER DAY
     Route: 055
     Dates: start: 2008

REACTIONS (4)
  - Off label use [Not Recovered/Not Resolved]
  - Abdominal pain [Recovered/Resolved]
  - Gallbladder disorder [Recovered/Resolved]
  - Multiple sclerosis [Not Recovered/Not Resolved]
